FAERS Safety Report 5086990-5 (Version None)
Quarter: 2006Q3

REPORT INFORMATION
  Report Type: 
  Country: None (occurrence: None)
  Receive Date: 20060821
  Receipt Date: 20060804
  Transmission Date: 20061208
  Serious: Yes (Death)
  Sender: FDA-Public Use
  Company Number: 2006AL002139

PATIENT
  Age: 62 Year
  Sex: Male

DRUGS (2)
  1. CITALOPRAM HYDROBROMIDE [Suspect]
     Indication: DEPRESSED MOOD
     Dosage: 20 MG;BID;PO
     Route: 048
     Dates: start: 20060117
  2. CO-CODOMAL [Concomitant]

REACTIONS (2)
  - COMPLETED SUICIDE [None]
  - PHARMACEUTICAL PRODUCT COMPLAINT [None]
